FAERS Safety Report 9355695 (Version 9)
Quarter: 2013Q3

REPORT INFORMATION
  Report Type: Report from Study
  Country: CA (occurrence: CA)
  Receive Date: 20130619
  Receipt Date: 20130924
  Transmission Date: 20140515
  Serious: Yes (Hospitalization, Other)
  Sender: FDA-Public Use
  Company Number: CA-ROCHE-1221184

PATIENT
  Age: 68 Year
  Sex: Female
  Weight: 50 kg

DRUGS (10)
  1. AVASTIN [Suspect]
     Indication: GLIOBLASTOMA
     Route: 042
     Dates: start: 20130424, end: 20130911
  2. DECADRON [Suspect]
     Indication: GLIOBLASTOMA
     Route: 048
     Dates: end: 20130708
  3. SOLU-MEDROL [Suspect]
     Indication: PREMEDICATION
     Route: 042
     Dates: start: 20130424, end: 20130605
  4. TYLENOL [Concomitant]
     Route: 048
     Dates: start: 20130424
  5. BENADRYL [Concomitant]
     Route: 048
     Dates: start: 20130424
  6. MONOCOR [Concomitant]
  7. JANUVIA [Concomitant]
  8. ASPIRIN [Concomitant]
  9. LIPITOR [Concomitant]
  10. ALTACE [Concomitant]

REACTIONS (20)
  - Blood glucose increased [Unknown]
  - Hypotonia [Unknown]
  - Fatigue [Not Recovered/Not Resolved]
  - Aphasia [Recovered/Resolved with Sequelae]
  - Hypotension [Unknown]
  - Balance disorder [Unknown]
  - Speech disorder [Unknown]
  - Injection site bruising [Not Recovered/Not Resolved]
  - Nasopharyngitis [Recovered/Resolved]
  - Cough [Not Recovered/Not Resolved]
  - Asthenia [Not Recovered/Not Resolved]
  - Dysphonia [Not Recovered/Not Resolved]
  - Blood pressure decreased [Unknown]
  - White blood cell count decreased [Unknown]
  - Red cell distribution width increased [Unknown]
  - Lymphocyte count decreased [Unknown]
  - Disease progression [Not Recovered/Not Resolved]
  - Body temperature decreased [Recovering/Resolving]
  - Platelet count decreased [Unknown]
  - Asthenia [Unknown]
